FAERS Safety Report 20913502 (Version 2)
Quarter: 2022Q2

REPORT INFORMATION
  Report Type: Report from Study
  Country: US (occurrence: US)
  Receive Date: 20220603
  Receipt Date: 20220628
  Transmission Date: 20220721
  Serious: Yes (Other)
  Sender: FDA-Public Use
  Company Number: US-ABBVIE-22K-163-4319720-00

PATIENT
  Sex: Female

DRUGS (5)
  1. SKYRIZI [Suspect]
     Active Substance: RISANKIZUMAB-RZAA
     Indication: Psoriasis
     Dosage: WEEK 0
     Route: 058
  2. SKYRIZI [Suspect]
     Active Substance: RISANKIZUMAB-RZAA
     Dosage: WEEK 4
     Route: 058
     Dates: start: 202009, end: 202009
  3. SKYRIZI [Suspect]
     Active Substance: RISANKIZUMAB-RZAA
     Route: 058
     Dates: start: 202012
  4. JANSSEN COVID-19 VACCINE [Concomitant]
     Active Substance: AD26.COV2.S
     Indication: COVID-19 immunisation
     Dosage: 1ST DOSE
     Route: 030
     Dates: start: 20210401, end: 20210401
  5. JANSSEN COVID-19 VACCINE [Concomitant]
     Active Substance: AD26.COV2.S
     Dosage: BOOSTER DOSE
     Route: 030
     Dates: start: 20211203, end: 20211203

REACTIONS (14)
  - Urinary incontinence [Unknown]
  - Diverticulum [Unknown]
  - Erythema [Unknown]
  - Pruritus [Unknown]
  - Fall [Unknown]
  - Back disorder [Unknown]
  - Lack of injection site rotation [Unknown]
  - General physical health deterioration [Unknown]
  - Cough [Unknown]
  - Pruritus [Recovering/Resolving]
  - Skin plaque [Recovering/Resolving]
  - Skin disorder [Unknown]
  - Unevaluable event [Not Recovered/Not Resolved]
  - Therapeutic response shortened [Unknown]

NARRATIVE: CASE EVENT DATE: 20220101
